FAERS Safety Report 9801385 (Version 1)
Quarter: 2014Q1

REPORT INFORMATION
  Report Type: Spontaneous
  Country: US (occurrence: US)
  Receive Date: 20140107
  Receipt Date: 20140107
  Transmission Date: 20141002
  Serious: No
  Sender: FDA-Public Use
  Company Number: US-GLAXOSMITHKLINE-A1052674A

PATIENT
  Age: 54 Year
  Sex: Female

DRUGS (8)
  1. BENLYSTA [Suspect]
     Indication: SYSTEMIC LUPUS ERYTHEMATOSUS
     Route: 042
     Dates: start: 20130720
  2. BENADRYL [Concomitant]
  3. TYLENOL [Concomitant]
  4. SOLU MEDROL [Concomitant]
  5. PLAQUENIL [Concomitant]
  6. PREDNISONE [Concomitant]
  7. NEURONTIN [Concomitant]
  8. ALEVE [Concomitant]

REACTIONS (6)
  - Wound complication [Unknown]
  - Rash [Unknown]
  - Fatigue [Unknown]
  - Ligament rupture [Unknown]
  - Local swelling [Unknown]
  - Pain in extremity [Unknown]
